FAERS Safety Report 5873415-2 (Version None)
Quarter: 2008Q3

REPORT INFORMATION
  Report Type: 
  Country: None (occurrence: None)
  Receive Date: 20080908
  Receipt Date: 20080715
  Transmission Date: 20090109
  Serious: Yes (Other)
  Sender: FDA-Public Use
  Company Number: US-PURDUE-USA_2008_0034529

PATIENT
  Age: 49 Year
  Sex: Male
  Weight: 91 kg

DRUGS (1)
  1. OXYCONTIN [Suspect]
     Indication: DRUG USE FOR UNKNOWN INDICATION
     Dosage: 10 MG, Q4H

REACTIONS (6)
  - DRUG DEPENDENCE [None]
  - ILLUSION [None]
  - INSOMNIA [None]
  - MOOD SWINGS [None]
  - NERVOUSNESS [None]
  - SUICIDAL IDEATION [None]
